FAERS Safety Report 23730884 (Version 2)
Quarter: 2024Q2

REPORT INFORMATION
  Report Type: Spontaneous
  Country: CA (occurrence: CA)
  Receive Date: 20240411
  Receipt Date: 20240422
  Transmission Date: 20240715
  Serious: Yes (Hospitalization)
  Sender: FDA-Public Use
  Company Number: CA-ABBVIE-5713060

PATIENT
  Age: 29 Week
  Sex: Male
  Weight: 92 kg

DRUGS (3)
  1. DALBAVANCIN HYDROCHLORIDE [Suspect]
     Active Substance: DALBAVANCIN HYDROCHLORIDE
     Indication: Subcutaneous abscess
     Dosage: TIME INTERVAL: AS NECESSARY: DOSAGE FORM - POWDER FOR SOLUTION INTRAVENOUS?FORM STRENGTH: 1500 MI...
     Route: 042
  2. METHADONE [Concomitant]
     Active Substance: METHADONE HYDROCHLORIDE
     Indication: Product used for unknown indication
  3. VANCOMYCIN HYDROCHLORIDE [Suspect]
     Active Substance: VANCOMYCIN HYDROCHLORIDE
     Indication: Subcutaneous abscess
     Dosage: DOSAGE FORM - POWDER FOR SOLUTION INTRAVENOUS,  FOR INJECTION USP?FORM STRENGTH: 1250 MILLIGRAM?M...
     Route: 042

REACTIONS (2)
  - Acute kidney injury [Recovered/Resolved]
  - Blood creatine increased [Recovered/Resolved]
